FAERS Safety Report 4469582-8 (Version None)
Quarter: 2004Q4

REPORT INFORMATION
  Report Type: 
  Country: None (occurrence: None)
  Receive Date: 20041008
  Receipt Date: 20040730
  Transmission Date: 20050328
  Serious: Yes (Hospitalization)
  Sender: FDA-Public Use
  Company Number: US-ABBOTT-04P-163-0269635-00

PATIENT
  Sex: Male

DRUGS (16)
  1. CLARITHROMYCIN [Suspect]
     Indication: ANTIBACTERIAL PROPHYLAXIS
     Route: 048
     Dates: start: 19991020
  2. RITONAVIR SOFT GELATIN CAPSULES [Suspect]
     Indication: HIV INFECTION
     Route: 048
     Dates: start: 20040610, end: 20040617
  3. RITONAVIR SOFT GELATIN CAPSULES [Suspect]
     Route: 048
     Dates: start: 20040702, end: 20040706
  4. RITONAVIR SOFT GELATIN CAPSULES [Suspect]
     Route: 048
     Dates: start: 20040714, end: 20040716
  5. RITONAVIR SOFT GELATIN CAPSULES [Suspect]
     Route: 048
     Dates: start: 20040716
  6. VALGANCICLOVIR [Suspect]
     Indication: CYTOMEGALOVIRUS CHORIORETINITIS
     Route: 048
     Dates: start: 20040602
  7. ACYCLOVIR [Suspect]
     Indication: ANTIVIRAL PROPHYLAXIS
     Route: 048
     Dates: start: 19970703, end: 20040714
  8. ENFUVIRTIDE [Concomitant]
     Indication: HIV INFECTION
     Route: 058
     Dates: start: 20040608, end: 20040614
  9. ENFUVIRTIDE [Concomitant]
     Route: 048
     Dates: start: 20040716
  10. TENOFOVIR [Concomitant]
     Indication: HIV INFECTION
     Route: 048
     Dates: start: 20020115, end: 20040714
  11. TENOFOVIR [Concomitant]
     Route: 048
     Dates: start: 20040716
  12. LAMIVUDINE [Concomitant]
     Indication: HIV INFECTION
     Route: 048
     Dates: start: 20000620, end: 20040714
  13. LAMIVUDINE [Concomitant]
     Route: 048
     Dates: start: 20040716
  14. TIPRANAVIR [Concomitant]
     Indication: HIV INFECTION
     Route: 048
     Dates: start: 20040714, end: 20040716
  15. TIPRANAVIR [Concomitant]
     Route: 048
     Dates: start: 20040702, end: 20040706
  16. TIPRANAVIR [Concomitant]
     Dates: start: 20040610, end: 20040617

REACTIONS (5)
  - ASTHENIA [None]
  - CLOSTRIDIUM COLITIS [None]
  - CYTOMEGALOVIRUS CHORIORETINITIS [None]
  - HIV INFECTION [None]
  - PYREXIA [None]
